FAERS Safety Report 22132110 (Version 8)
Quarter: 2023Q4

REPORT INFORMATION
  Report Type: Report from Study
  Country: US (occurrence: US)
  Receive Date: 20230323
  Receipt Date: 20231011
  Transmission Date: 20240109
  Serious: Yes (Other)
  Sender: FDA-Public Use
  Company Number: US-002147023-NVSC2023US063045

PATIENT
  Sex: Female

DRUGS (11)
  1. COSENTYX [Suspect]
     Active Substance: SECUKINUMAB
     Indication: Psoriasis
     Dosage: 150 MG
     Route: 058
  2. COSENTYX [Suspect]
     Active Substance: SECUKINUMAB
     Dosage: 300 MG, QW (WEEKS 0,1,2,3 AND 4)
     Route: 058
     Dates: start: 20220125
  3. COSENTYX [Suspect]
     Active Substance: SECUKINUMAB
     Dosage: 300 MG, QMO
     Route: 058
  4. METFORMIN [Suspect]
     Active Substance: METFORMIN HYDROCHLORIDE
     Indication: Psoriasis
     Dosage: 500 MG, QD
     Route: 048
  5. CLOBETASOL [Suspect]
     Active Substance: CLOBETASOL
     Indication: Psoriasis
     Dosage: UNK
     Route: 065
  6. CLOBETASOL [Suspect]
     Active Substance: CLOBETASOL
     Indication: Skin wrinkling
     Dosage: 0.05 %
     Route: 061
  7. CLOBETASOL [Suspect]
     Active Substance: CLOBETASOL
     Dosage: 0.05 %, BID (X2 WEEKS)
     Route: 061
  8. ADDERALL XR [Concomitant]
     Active Substance: AMPHETAMINE ASPARTATE\AMPHETAMINE SULFATE\DEXTROAMPHETAMINE SACCHARATE\DEXTROAMPHETAMINE SULFATE
     Indication: Product used for unknown indication
     Dosage: 30 MG, QD (EXTENDED RELEASE 24 HOURS)
     Route: 048
  9. PROTOPIC [Concomitant]
     Active Substance: TACROLIMUS
     Indication: Product used for unknown indication
     Dosage: UNK
     Route: 065
  10. ALCLOMETASONE [Concomitant]
     Active Substance: ALCLOMETASONE
     Indication: Psoriasis
     Dosage: UNK, BID (0.05%)
     Route: 061
  11. ALCLOMETASONE [Concomitant]
     Active Substance: ALCLOMETASONE
     Indication: Skin wrinkling

REACTIONS (16)
  - Psoriatic arthropathy [Unknown]
  - Arthralgia [Unknown]
  - Illness [Unknown]
  - Nervousness [Unknown]
  - Birth mark [Unknown]
  - Lentigo [Unknown]
  - Haemangioma of skin [Unknown]
  - Nail pitting [Unknown]
  - Upper respiratory tract infection [Unknown]
  - Psoriasis [Recovering/Resolving]
  - Rash [Unknown]
  - Dermatitis psoriasiform [Unknown]
  - Macule [Unknown]
  - Papule [Unknown]
  - Product use in unapproved indication [Unknown]
  - Therapeutic product ineffective [Unknown]
